FAERS Safety Report 8066207-X (Version None)
Quarter: 2012Q1

REPORT INFORMATION
  Report Type: 
  Country: None (occurrence: None)
  Receive Date: 20120124
  Receipt Date: 20120120
  Transmission Date: 20120608
  Serious: Yes (Hospitalization, Other)
  Sender: FDA-Public Use
  Company Number: AU-B.I. PHARMACEUTICALS,INC./RIDGEFIELD-2012-EU-00489GD

PATIENT
  Age: 74 Year
  Sex: Male

DRUGS (1)
  1. MELOXICAM [Suspect]
     Indication: PAIN IN JAW

REACTIONS (5)
  - RENAL FAILURE ACUTE [None]
  - LYMPHOPENIA [None]
  - RHABDOMYOLYSIS [None]
  - URTICARIA [None]
  - EOSINOPHILIA [None]
